FAERS Safety Report 22951244 (Version 3)
Quarter: 2025Q1

REPORT INFORMATION
  Report Type: Spontaneous
  Country: US (occurrence: US)
  Receive Date: 20230917
  Receipt Date: 20250228
  Transmission Date: 20250409
  Serious: No
  Sender: LUPIN
  Company Number: US-LUPIN PHARMACEUTICALS INC.-2023-07824

PATIENT

DRUGS (7)
  1. ALBUTEROL SULFATE [Suspect]
     Active Substance: ALBUTEROL SULFATE
     Indication: Asthma
     Dates: start: 202308
  2. ZYRTEC [Concomitant]
     Active Substance: CETIRIZINE HYDROCHLORIDE
     Indication: Product used for unknown indication
     Route: 065
  3. CETIRIZINE [Concomitant]
     Active Substance: CETIRIZINE HYDROCHLORIDE
     Indication: Product used for unknown indication
     Route: 065
  4. SEROQUEL [Concomitant]
     Active Substance: QUETIAPINE FUMARATE
     Indication: Sleep disorder
     Route: 065
  5. PRILOSEC [Concomitant]
     Active Substance: OMEPRAZOLE MAGNESIUM
     Indication: Product used for unknown indication
     Route: 065
  6. CLONIDINE [Concomitant]
     Active Substance: CLONIDINE
     Indication: Anxiety
     Route: 065
  7. CRESTOR [Concomitant]
     Active Substance: ROSUVASTATIN CALCIUM
     Indication: Blood cholesterol increased
     Route: 065

REACTIONS (4)
  - Panic attack [Unknown]
  - Drug dose omission by device [Unknown]
  - Device delivery system issue [Unknown]
  - Device deposit issue [Unknown]
